FAERS Safety Report 22319916 (Version 12)
Quarter: 2024Q4

REPORT INFORMATION
  Report Type: Report from Study
  Country: CR (occurrence: CR)
  Receive Date: 20230515
  Receipt Date: 20241104
  Transmission Date: 20250115
  Serious: Yes (Hospitalization, Other)
  Sender: ELI LILLY AND COMPANY
  Company Number: CR-ELI_LILLY_AND_COMPANY-CR202305007036

PATIENT
  Age: 70 Year
  Sex: Female
  Weight: 80 kg

DRUGS (3)
  1. VERZENIO [Suspect]
     Active Substance: ABEMACICLIB
     Indication: Breast cancer
     Dosage: 150 MG, BID
     Route: 048
     Dates: start: 20230322
  2. VERZENIO [Suspect]
     Active Substance: ABEMACICLIB
     Dosage: 150 MG, BID
     Route: 048
     Dates: start: 202305, end: 20240720
  3. FAMOTIDINE [Concomitant]
     Active Substance: FAMOTIDINE
     Indication: Diabetes mellitus
     Dosage: 20 MG, DAILY
     Route: 048

REACTIONS (20)
  - Abdominal pain upper [Recovered/Resolved]
  - Abdominal pain lower [Recovered/Resolved]
  - Nausea [Recovered/Resolved]
  - Decreased appetite [Recovered/Resolved]
  - Fatigue [Recovered/Resolved]
  - Anaemia [Recovered/Resolved]
  - Vomiting [Recovered/Resolved]
  - Syncope [Recovered/Resolved]
  - Gastritis [Recovered/Resolved]
  - Blood pressure decreased [Recovered/Resolved]
  - Dengue fever [Recovered/Resolved]
  - Illness [Recovered/Resolved]
  - Decreased immune responsiveness [Recovered/Resolved]
  - Weight decreased [Recovered/Resolved]
  - Discomfort [Recovered/Resolved]
  - Feeding disorder [Recovered/Resolved]
  - Food aversion [Recovered/Resolved]
  - Abdominal pain upper [Recovered/Resolved]
  - Platelet count decreased [Recovered/Resolved]
  - Asthenia [Recovered/Resolved]

NARRATIVE: CASE EVENT DATE: 20230508
